FAERS Safety Report 15075449 (Version 2)
Quarter: 2023Q4

REPORT INFORMATION
  Report Type: Report from Study
  Country: US (occurrence: US)
  Receive Date: 20180627
  Receipt Date: 20231128
  Transmission Date: 20240110
  Serious: Yes (Other)
  Sender: FDA-Public Use
  Company Number: US-SAOL THERAPEUTICS-2018SAO00060

PATIENT
  Age: 31 Year
  Sex: Male
  Weight: 90.703 kg

DRUGS (30)
  1. BACLOFEN [Suspect]
     Active Substance: BACLOFEN
     Dosage: 9.61 ?G, \DAY
     Route: 037
  2. BACLOFEN [Suspect]
     Active Substance: BACLOFEN
     Dosage: 47.91 ?G, \DAY - MAX
     Route: 037
  3. BACLOFEN [Suspect]
     Active Substance: BACLOFEN
     Dosage: 100.02 ?G, \DAY
     Route: 037
     Dates: start: 20170928, end: 20171221
  4. BACLOFEN [Suspect]
     Active Substance: BACLOFEN
     Dosage: 158.37 ?G, \DAY - MAX
     Route: 037
     Dates: start: 20170928, end: 20171221
  5. BACLOFEN [Suspect]
     Active Substance: BACLOFEN
     Dosage: 79.93 ?G, \DAY
     Route: 037
     Dates: start: 20171221, end: 20171226
  6. BACLOFEN [Suspect]
     Active Substance: BACLOFEN
     Dosage: 138.62 ?G, \DAY; MAX
     Route: 037
     Dates: start: 20171221, end: 20171226
  7. BACLOFEN [Suspect]
     Active Substance: BACLOFEN
     Dosage: 50.01 ?G, \DAY
     Route: 037
     Dates: start: 20171226, end: 20180116
  8. BACLOFEN [Suspect]
     Active Substance: BACLOFEN
     Dosage: 109.19 ?G, \DAY; MAX
     Route: 037
     Dates: start: 20171226, end: 20180116
  9. BACLOFEN [Suspect]
     Active Substance: BACLOFEN
     Dosage: 32.04 ?G, \DAY
     Route: 037
     Dates: start: 20180116
  10. BACLOFEN [Suspect]
     Active Substance: BACLOFEN
     Dosage: 89.120 ?G, \DAY; MAX
     Route: 037
     Dates: start: 20180116
  11. FENTANYL [Suspect]
     Active Substance: FENTANYL\FENTANYL CITRATE
     Dosage: 24.02 ?G, \DAY
     Route: 037
  12. FENTANYL [Suspect]
     Active Substance: FENTANYL\FENTANYL CITRATE
     Dosage: 119.77 ?G, \DAY - MAX
     Route: 037
  13. FENTANYL [Suspect]
     Active Substance: FENTANYL\FENTANYL CITRATE
     Dosage: 250.06 ?G, \DAY
     Route: 037
     Dates: start: 20170825, end: 20171221
  14. FENTANYL [Suspect]
     Active Substance: FENTANYL\FENTANYL CITRATE
     Dosage: 395.93 ?G, \DAY - MAX
     Route: 037
     Dates: start: 20170825, end: 20171221
  15. FENTANYL [Suspect]
     Active Substance: FENTANYL\FENTANYL CITRATE
     Dosage: 199.84 ?G, \DAY
     Route: 037
     Dates: start: 20171221, end: 20171226
  16. FENTANYL [Suspect]
     Active Substance: FENTANYL\FENTANYL CITRATE
     Dosage: 346.54 ?G, \DAY; MAX
     Route: 037
     Dates: start: 20171221, end: 20171226
  17. FENTANYL [Suspect]
     Active Substance: FENTANYL\FENTANYL CITRATE
     Dosage: 125.03 ?G, \DAY
     Route: 037
     Dates: start: 20171226, end: 20180116
  18. FENTANYL [Suspect]
     Active Substance: FENTANYL\FENTANYL CITRATE
     Dosage: 272.98 ?G, \DAY; MAX
     Route: 037
     Dates: start: 20171226, end: 20180116
  19. FENTANYL [Suspect]
     Active Substance: FENTANYL\FENTANYL CITRATE
     Dosage: 80.10 ?G, \DAY
     Route: 037
     Dates: start: 20180116
  20. FENTANYL [Suspect]
     Active Substance: FENTANYL\FENTANYL CITRATE
     Dosage: 222.8 ?G, \DAY; MAX
     Route: 037
     Dates: start: 20180116
  21. BUPIVACAINE [Suspect]
     Active Substance: BUPIVACAINE
     Dosage: 1.441 MG, \DAY
     Route: 037
  22. BUPIVACAINE [Suspect]
     Active Substance: BUPIVACAINE
     Dosage: 7.186 MG, \DAY - MAX
     Route: 037
  23. BUPIVACAINE [Suspect]
     Active Substance: BUPIVACAINE
     Dosage: 15.004 MG, \DAY
     Route: 037
     Dates: start: 20170825, end: 20171221
  24. BUPIVACAINE [Suspect]
     Active Substance: BUPIVACAINE
     Dosage: 23.756 MG, \DAY - MAX
     Route: 037
     Dates: start: 20170825, end: 20171221
  25. BUPIVACAINE [Suspect]
     Active Substance: BUPIVACAINE
     Dosage: 11.990 MG, \DAY
     Route: 037
     Dates: start: 20171221, end: 20171226
  26. BUPIVACAINE [Suspect]
     Active Substance: BUPIVACAINE
     Dosage: 20.793 MG, \DAY; MAX
     Route: 037
     Dates: start: 20171221, end: 20171226
  27. BUPIVACAINE [Suspect]
     Active Substance: BUPIVACAINE
     Dosage: 7.502 MG, \DAY
     Route: 037
     Dates: start: 20171226, end: 20180116
  28. BUPIVACAINE [Suspect]
     Active Substance: BUPIVACAINE
     Dosage: 16.379 MG, \DAY; MAX
     Route: 037
     Dates: start: 20171226, end: 20180116
  29. BUPIVACAINE [Suspect]
     Active Substance: BUPIVACAINE
     Dosage: 4.806 MG, \DAY
     Route: 037
     Dates: start: 20180116
  30. BUPIVACAINE [Suspect]
     Active Substance: BUPIVACAINE
     Dosage: 13.368 MG, \DAY; MAX
     Route: 037
     Dates: start: 20180116

REACTIONS (4)
  - Hypoaesthesia [Recovered/Resolved]
  - Drug withdrawal syndrome [Recovered/Resolved]
  - Pain in extremity [Recovered/Resolved]
  - Impaired healing [Recovered/Resolved]

NARRATIVE: CASE EVENT DATE: 20171016
